FAERS Safety Report 9517016 (Version 1)
Quarter: 2013Q3

REPORT INFORMATION
  Report Type: Spontaneous
  Country: AU (occurrence: AU)
  Receive Date: 20130911
  Receipt Date: 20130911
  Transmission Date: 20140515
  Serious: Yes (Other)
  Sender: FDA-Public Use
  Company Number: AU-PFIZER INC-2013259939

PATIENT
  Age: 73 Year
  Sex: Male

DRUGS (1)
  1. PHENYTOIN SODIUM [Suspect]
     Dosage: 15 MG/KG, 1 G/H

REACTIONS (5)
  - Electrocardiogram QRS complex prolonged [Unknown]
  - Hypotension [Unknown]
  - Bradycardia [Unknown]
  - Nystagmus [Unknown]
  - Somnolence [Unknown]
